FAERS Safety Report 15480411 (Version 3)
Quarter: 2019Q3

REPORT INFORMATION
  Report Type: Report from Study
  Country: CO (occurrence: CO)
  Receive Date: 20181009
  Receipt Date: 20190926
  Transmission Date: 20191004
  Serious: Yes (Hospitalization, Other)
  Sender: FDA-Public Use
  Company Number: CO-BRISTOL-MYERS SQUIBB COMPANY-BMS-2017-045080

PATIENT
  Age: 76 Year
  Sex: Female

DRUGS (1)
  1. ABATACEPT [Suspect]
     Active Substance: ABATACEPT
     Indication: RHEUMATOID ARTHRITIS
     Dosage: 500 MG, Q4WK
     Route: 042
     Dates: start: 20161103

REACTIONS (5)
  - Inflammation [Recovering/Resolving]
  - Phlebitis [Recovering/Resolving]
  - Bone disorder [Recovering/Resolving]
  - Thrombosis [Unknown]
  - Varicose ulceration [Recovering/Resolving]

NARRATIVE: CASE EVENT DATE: 201702
